FAERS Safety Report 12723849 (Version 2)
Quarter: 2017Q2

REPORT INFORMATION
  Report Type: Spontaneous
  Country: JP (occurrence: JP)
  Receive Date: 20160908
  Receipt Date: 20170613
  Transmission Date: 20170830
  Serious: Yes (Death, Disabling)
  Sender: FDA-Public Use
  Company Number: JP-BAYER-2016-132648

PATIENT
  Age: 53 Year
  Sex: Male
  Weight: 71.1 kg

DRUGS (6)
  1. BAYASPIRIN [Suspect]
     Active Substance: ASPIRIN
     Indication: ACUTE MYOCARDIAL INFARCTION
     Dosage: 300 MG, QD
     Route: 048
     Dates: start: 20140726, end: 20140726
  2. NICORANDIL [Concomitant]
     Active Substance: NICORANDIL
     Indication: ANGINA UNSTABLE
     Dosage: UNK
     Route: 042
     Dates: start: 20140726, end: 20140727
  3. HEPARIN [Suspect]
     Active Substance: HEPARIN SODIUM
     Indication: ACUTE MYOCARDIAL INFARCTION
     Dosage: UNK
     Route: 042
     Dates: start: 20140726, end: 20140727
  4. LANSOPRAZOLE. [Concomitant]
     Active Substance: LANSOPRAZOLE
     Indication: PROPHYLAXIS AGAINST GASTROINTESTINAL ULCER
     Dosage: 15 MG, QD
     Route: 048
     Dates: start: 20140726, end: 20140726
  5. CRESTOR [Concomitant]
     Active Substance: ROSUVASTATIN CALCIUM
     Indication: PROPHYLAXIS
     Dosage: 2.5 MG, QD
     Route: 048
     Dates: start: 20140726, end: 20140726
  6. BAYASPIRIN [Suspect]
     Active Substance: ASPIRIN
     Indication: ANGINA UNSTABLE

REACTIONS (5)
  - Subarachnoid haemorrhage [Fatal]
  - Chills [None]
  - Blood pressure decreased [None]
  - Cerebral haematoma [Fatal]
  - Subdural haematoma [Fatal]

NARRATIVE: CASE EVENT DATE: 201407
